FAERS Safety Report 5199387-4 (Version None)
Quarter: 2006Q4

REPORT INFORMATION
  Report Type: 
  Country: None (occurrence: None)
  Receive Date: 20061016
  Receipt Date: 20060713
  Transmission Date: 20070319
  Serious: No
  Sender: FDA-Public Use
  Company Number: 2006SP002776

PATIENT
  Age: 42 Year

DRUGS (1)
  1. LUNESTA [Suspect]
     Dosage: 2 MG;ORAL
     Route: 048

REACTIONS (1)
  - NIGHTMARE [None]
